FAERS Safety Report 23394412 (Version 2)
Quarter: 2024Q1

REPORT INFORMATION
  Report Type: Spontaneous
  Country: BR (occurrence: BR)
  Receive Date: 20240111
  Receipt Date: 20240227
  Transmission Date: 20240410
  Serious: Yes (Hospitalization)
  Sender: FDA-Public Use
  Company Number: BR-BIOGEN-2024BI01244046

PATIENT
  Age: 66 Year
  Sex: Male
  Weight: 115 kg

DRUGS (3)
  1. DALFAMPRIDINE [Suspect]
     Active Substance: DALFAMPRIDINE
     Indication: Gait disturbance
     Route: 050
     Dates: start: 2018
  2. DALFAMPRIDINE [Suspect]
     Active Substance: DALFAMPRIDINE
     Dosage: 2016/2017
     Route: 050
  3. GALANTAMINE [Concomitant]
     Active Substance: GALANTAMINE
     Indication: Memory impairment
     Route: 050
     Dates: end: 202309

REACTIONS (2)
  - Myocardial infarction [Recovered/Resolved]
  - Thrombosis [Recovered/Resolved]

NARRATIVE: CASE EVENT DATE: 20210115
